FAERS Safety Report 4933733-9 (Version None)
Quarter: 2006Q1

REPORT INFORMATION
  Report Type: 
  Country: None (occurrence: None)
  Receive Date: 20060306
  Receipt Date: 20060227
  Transmission Date: 20060701
  Serious: Yes (Other)
  Sender: FDA-Public Use
  Company Number: FR-ABBOTT-06P-056-0326209-00

PATIENT
  Sex: Female
  Weight: 64 kg

DRUGS (2)
  1. SECALIP [Suspect]
     Indication: HYPERCHOLESTEROLAEMIA
     Route: 048
     Dates: start: 20060130, end: 20060131
  2. ESBERIVEN FORTE [Concomitant]
     Indication: VENOUS INSUFFICIENCY

REACTIONS (5)
  - DYSPEPSIA [None]
  - OEDEMA MOUTH [None]
  - PHARYNGEAL OEDEMA [None]
  - STOMATITIS [None]
  - THROAT IRRITATION [None]
